FAERS Safety Report 6170081-6 (Version None)
Quarter: 2009Q2

REPORT INFORMATION
  Report Type: 
  Country: None (occurrence: None)
  Receive Date: 20090428
  Receipt Date: 20090423
  Transmission Date: 20091009
  Serious: Yes (Hospitalization)
  Sender: FDA-Public Use
  Company Number: A0780617A

PATIENT
  Sex: Male
  Weight: 13 kg

DRUGS (3)
  1. SERETIDE [Suspect]
     Indication: ASTHMA
     Dosage: 1PUFF TWICE PER DAY
     Route: 055
     Dates: start: 20090130
  2. BUDECORT [Concomitant]
     Dosage: 1PUFF PER DAY
     Dates: start: 20090130
  3. BENZALKONIUM CHLORIDE [Concomitant]
     Dosage: 1PUFF TWICE PER DAY
     Dates: start: 20090130

REACTIONS (2)
  - ASTHMATIC CRISIS [None]
  - DRUG ADMINISTRATION ERROR [None]
